FAERS Safety Report 24560046 (Version 1)
Quarter: 2024Q4

REPORT INFORMATION
  Report Type: Spontaneous
  Country: BR (occurrence: BR)
  Receive Date: 20241029
  Receipt Date: 20241029
  Transmission Date: 20250114
  Serious: Yes (Other)
  Sender: ALEXION PHARMACEUTICALS
  Company Number: BR-AstraZeneca-CH-00730711A

PATIENT

DRUGS (4)
  1. CALQUENCE [Suspect]
     Active Substance: ACALABRUTINIB
     Indication: Choriomeningitis lymphocytic
     Dosage: UNK
  2. CALQUENCE [Suspect]
     Active Substance: ACALABRUTINIB
     Dosage: UNK
  3. CALQUENCE [Suspect]
     Active Substance: ACALABRUTINIB
     Dosage: UNK
  4. CALQUENCE [Suspect]
     Active Substance: ACALABRUTINIB
     Dosage: UNK

REACTIONS (1)
  - Oedema peripheral [Recovering/Resolving]
